FAERS Safety Report 7919862-6 (Version None)
Quarter: 2011Q4

REPORT INFORMATION
  Report Type: 
  Country: None (occurrence: None)
  Receive Date: 20111115
  Receipt Date: 20111031
  Transmission Date: 20120403
  Serious: Yes (Other)
  Sender: FDA-Public Use
  Company Number: FK201102558

PATIENT
  Age: 14 Year
  Sex: Male

DRUGS (1)
  1. MORPHINE SULFATE [Suspect]
     Indication: ANALGESIC THERAPY
     Dosage: 98 MG, TOTAL DOSE; DAY 1, INTRAVENOUS  90 MG, TOTAL DOSE DAY;2 AND 3, INTRAVENOUS  42 MG, OVER 12 HO
     Route: 042

REACTIONS (8)
  - ELECTROCARDIOGRAM QT PROLONGED [None]
  - RENAL FAILURE ACUTE [None]
  - ELECTROCARDIOGRAM P WAVE ABNORMAL [None]
  - URINARY RETENTION [None]
  - ELECTROCARDIOGRAM T WAVE PEAKED [None]
  - HYPERKALAEMIA [None]
  - TACHYCARDIA [None]
  - BLOOD SODIUM DECREASED [None]
